FAERS Safety Report 4965576-4 (Version None)
Quarter: 2006Q1

REPORT INFORMATION
  Report Type: 
  Country: None (occurrence: None)
  Receive Date: 20060201
  Receipt Date: 20051005
  Transmission Date: 20060701
  Serious: No
  Sender: FDA-Public Use
  Company Number: 2005PV002828

PATIENT
  Age: 65 Year
  Sex: Female
  Weight: 77.1115 kg

DRUGS (6)
  1. BYETTA [Suspect]
     Indication: DIABETES MELLITUS NON-INSULIN-DEPENDENT
     Dosage: 10 MCG BID SC, 5 MG BID SC
     Route: 058
     Dates: start: 20050823, end: 20050921
  2. BYETTA [Suspect]
     Indication: DIABETES MELLITUS NON-INSULIN-DEPENDENT
     Dosage: 10 MCG BID SC, 5 MG BID SC
     Route: 058
     Dates: start: 20050922
  3. GLUCOPHAGE [Concomitant]
  4. GLYBURIDE [Concomitant]
  5. ALTACE [Concomitant]
  6. PREVACID [Concomitant]

REACTIONS (4)
  - BLOOD GLUCOSE INCREASED [None]
  - DYSGEUSIA [None]
  - UNDERDOSE [None]
  - WEIGHT DECREASED [None]
